FAERS Safety Report 13839555 (Version 1)
Quarter: 2017Q3

REPORT INFORMATION
  Report Type: Spontaneous
  Country: GB (occurrence: GB)
  Receive Date: 20170807
  Receipt Date: 20170807
  Transmission Date: 20171127
  Serious: Yes (Hospitalization)
  Sender: FDA-Public Use
  Company Number: GB-TEVA-792743ACC

PATIENT
  Sex: Female

DRUGS (1)
  1. METRONIDAZOLE. [Suspect]
     Active Substance: METRONIDAZOLE
     Dosage: 1200 MILLIGRAM DAILY;
     Route: 048

REACTIONS (4)
  - Facial paralysis [Unknown]
  - Asthenia [Unknown]
  - Aphasia [Unknown]
  - Bone pain [Unknown]
